FAERS Safety Report 9056282 (Version 5)
Quarter: 2013Q3

REPORT INFORMATION
  Report Type: Spontaneous
  Country: US (occurrence: US)
  Receive Date: 20130205
  Receipt Date: 20130930
  Transmission Date: 20140515
  Serious: Yes (Hospitalization)
  Sender: FDA-Public Use
  Company Number: US-B.I. PHARMACEUTICALS,INC./RIDGEFIELD-2013-BI-02413BP

PATIENT
  Age: 77 Year
  Sex: Female
  Weight: 86.18 kg

DRUGS (8)
  1. PRADAXA [Suspect]
     Indication: ANTICOAGULANT THERAPY
     Dosage: 300 MG
     Route: 048
     Dates: start: 20110208, end: 20110224
  2. PRADAXA [Suspect]
     Indication: ATRIAL FIBRILLATION
  3. DOXAZOSIN [Concomitant]
     Dosage: 8 MG
     Route: 048
  4. CRESTOR [Concomitant]
     Indication: HYPERLIPIDAEMIA
     Dosage: 20 MG
     Route: 048
  5. IRON [Concomitant]
     Dosage: 650 MG
     Route: 048
  6. LISINOPRIL HCTZ [Concomitant]
     Indication: HYPERTENSION
     Route: 048
  7. KCL [Concomitant]
     Dosage: 10 MEQ
     Route: 048
  8. ZANTAC [Concomitant]
     Dosage: 150 MG
     Route: 048

REACTIONS (2)
  - Upper gastrointestinal haemorrhage [Recovered/Resolved]
  - Anaemia [Unknown]
